FAERS Safety Report 8240426-1 (Version None)
Quarter: 2012Q1

REPORT INFORMATION
  Report Type: 
  Country: None (occurrence: None)
  Receive Date: 20120328
  Receipt Date: 20120319
  Transmission Date: 20120608
  Serious: Yes (Death)
  Sender: FDA-Public Use
  Company Number: FR-ROCHE-1053024

PATIENT
  Age: 57 Year
  Sex: Male

DRUGS (5)
  1. BEVACIZUMAB [Suspect]
     Indication: COLORECTAL CANCER METASTATIC
     Dosage: PREVIOUS COMBINATION THERAPY
  2. BEVACIZUMAB [Suspect]
  3. IRINOTECAN HCL [Suspect]
     Indication: COLORECTAL CANCER METASTATIC
     Dosage: PREVIOUS COMBINATION THERAPY
  4. IRINOTECAN HCL [Suspect]
  5. CAPECITABINE [Suspect]
     Indication: COLORECTAL CANCER METASTATIC

REACTIONS (3)
  - NEUTROPENIA [None]
  - DIARRHOEA [None]
  - SEPSIS [None]
